FAERS Safety Report 8427616-X (Version None)
Quarter: 2012Q2

REPORT INFORMATION
  Report Type: 
  Country: None (occurrence: None)
  Receive Date: 20120323
  Receipt Date: 20111128
  Transmission Date: 20120825
  Serious: Yes (Hospitalization)
  Sender: FDA-Public Use
  Company Number: 163-21880-11113959

PATIENT
  Age: 73 Year
  Sex: Male
  Weight: 76.2043 kg

DRUGS (8)
  1. DEXAMETHASONE [Concomitant]
  2. REVLIMID [Suspect]
     Indication: MULTIPLE MYELOMA
     Dosage: 15 MG, DAILY FOR 21 DAYS OF 28 DAY CYCLE, PO
     Route: 048
     Dates: start: 20100301
  3. ASPIRIN [Concomitant]
  4. NEBIVOLOL [Concomitant]
  5. FUROSEMIDE [Concomitant]
  6. SIMVASTATIN [Concomitant]
  7. DOXAZOSIN MESYLATE [Concomitant]
  8. WARFARIN SODIUM [Concomitant]

REACTIONS (1)
  - GASTROINTESTINAL HAEMORRHAGE [None]
